FAERS Safety Report 17662576 (Version 5)
Quarter: 2022Q1

REPORT INFORMATION
  Report Type: Spontaneous
  Country: US (occurrence: US)
  Receive Date: 20200413
  Receipt Date: 20220321
  Transmission Date: 20220423
  Serious: Yes (Other)
  Sender: FDA-Public Use
  Company Number: US-PFIZER INC-2020148093

PATIENT
  Age: 51 Year
  Sex: Female
  Weight: 90.72 kg

DRUGS (3)
  1. XELJANZ [Suspect]
     Active Substance: TOFACITINIB CITRATE
     Indication: Rheumatoid arthritis
     Dosage: 5 MG
     Dates: start: 20191001
  2. XELJANZ [Suspect]
     Active Substance: TOFACITINIB CITRATE
     Dosage: 5 MG
     Dates: start: 20191101
  3. XELJANZ [Suspect]
     Active Substance: TOFACITINIB CITRATE
     Dosage: 5 MG, 2X/DAY (ONE TABLET TWICE DAILY)

REACTIONS (6)
  - Cardiac failure congestive [Unknown]
  - Blood test abnormal [Unknown]
  - Peripheral swelling [Unknown]
  - Pain [Unknown]
  - Condition aggravated [Unknown]
  - Product dose omission issue [Unknown]
